FAERS Safety Report 8594005-7 (Version None)
Quarter: 2012Q3

REPORT INFORMATION
  Report Type: 
  Country: None (occurrence: None)
  Receive Date: 20120814
  Receipt Date: 20120725
  Transmission Date: 20120928
  Serious: No
  Sender: FDA-Public Use
  Company Number: US-ASTRAZENECA-2012SE53502

PATIENT

DRUGS (3)
  1. SYMBICORT [Suspect]
     Indication: ASTHMA
     Dosage: UNKNOWN
     Route: 055
  2. FLUTICASONE PROPIONATE [Concomitant]
     Indication: ASTHMA
  3. ASMACORT [Concomitant]
     Indication: ASTHMA

REACTIONS (2)
  - SKIN ATROPHY [None]
  - CONTUSION [None]
